FAERS Safety Report 6886825-1 (Version None)
Quarter: 2010Q3

REPORT INFORMATION
  Report Type: 
  Country: None (occurrence: None)
  Receive Date: 20100730
  Receipt Date: 20100723
  Transmission Date: 20110219
  Serious: Yes (Hospitalization, Other)
  Sender: FDA-Public Use
  Company Number: US-PFIZER INC-2010035465

PATIENT
  Sex: Female

DRUGS (9)
  1. CHANTIX [Suspect]
     Indication: SMOKING CESSATION THERAPY
     Dosage: UNK
     Route: 048
     Dates: start: 20080122, end: 20080319
  2. CYMBALTA [Concomitant]
     Indication: DEPRESSION
     Dosage: UNK
     Dates: start: 20050101
  3. VITAMIN D [Concomitant]
     Indication: MEDICAL DIET
     Dosage: UNK
     Dates: start: 20030101
  4. CIPROFLOXACIN [Concomitant]
     Indication: NASAL CONGESTION
     Dosage: UNK
     Dates: start: 19990101, end: 20090101
  5. CIPROFLOXACIN [Concomitant]
     Indication: SINUSITIS
  6. CIPROFLOXACIN [Concomitant]
     Indication: BRONCHITIS
  7. CEPHALEXIN [Concomitant]
     Indication: SINUSITIS
     Dosage: UNK
     Dates: start: 19990101, end: 20090101
  8. CEPHALEXIN [Concomitant]
     Indication: NASAL CONGESTION
  9. CEPHALEXIN [Concomitant]
     Indication: BRONCHITIS

REACTIONS (7)
  - ABNORMAL BEHAVIOUR [None]
  - ANXIETY [None]
  - DEPRESSION [None]
  - FALL [None]
  - INSOMNIA [None]
  - INTENTIONAL OVERDOSE [None]
  - SUICIDE ATTEMPT [None]
